FAERS Safety Report 5997410-8 (Version None)
Quarter: 2008Q4

REPORT INFORMATION
  Report Type: 
  Country: None (occurrence: None)
  Receive Date: 20081212
  Receipt Date: 20081114
  Transmission Date: 20090506
  Serious: No
  Sender: FDA-Public Use
  Company Number: US-ABBOTT-08P-163-0487284-00

PATIENT
  Sex: Male
  Weight: 60.836 kg

DRUGS (7)
  1. HUMIRA [Suspect]
     Indication: RHEUMATOID ARTHRITIS
     Route: 058
     Dates: start: 20070201
  2. FOLIC ACID [Concomitant]
     Indication: RHEUMATOID ARTHRITIS
  3. IBUPROFEN [Concomitant]
     Indication: RHEUMATOID ARTHRITIS
  4. VITAMIN D [Concomitant]
     Indication: RHEUMATOID ARTHRITIS
  5. CENTRUM VITAMINS [Concomitant]
     Indication: RHEUMATOID ARTHRITIS
  6. TEMAZEPAM [Concomitant]
     Indication: INSOMNIA
  7. VICODIN [Concomitant]
     Indication: PAIN

REACTIONS (2)
  - HEPATITIS C [None]
  - LIVER FUNCTION TEST ABNORMAL [None]
